FAERS Safety Report 4338583-2 (Version None)
Quarter: 2004Q2

REPORT INFORMATION
  Report Type: 
  Country: None (occurrence: None)
  Receive Date: 20040407
  Receipt Date: 20040323
  Transmission Date: 20050107
  Serious: Yes (Disabling)
  Sender: FDA-Public Use
  Company Number: S04-FRA-00791-01

PATIENT
  Age: 34 Year
  Sex: Female

DRUGS (2)
  1. SEROPRAM (CITALOPRAM HYDROBROMIDE) [Suspect]
     Indication: DEPRESSION
     Dosage: 20 MG QD PO
     Route: 048
     Dates: start: 20040207, end: 20040214
  2. XANAX [Suspect]
     Dates: end: 20040221

REACTIONS (4)
  - CONVERSION DISORDER [None]
  - DYSKINESIA [None]
  - MENTAL DISORDER [None]
  - SPEECH DISORDER [None]
